FAERS Safety Report 9308091 (Version 1)
Quarter: 2013Q2

REPORT INFORMATION
  Report Type: Spontaneous
  Country: US (occurrence: US)
  Receive Date: 20130524
  Receipt Date: 20130524
  Transmission Date: 20140414
  Serious: No
  Sender: FDA-Public Use
  Company Number: US-ROXANE LABORATORIES, INC.-2013-RO-00828RO

PATIENT
  Sex: Female

DRUGS (4)
  1. CYCLOPHOSPHAMIDE TABLETS USP [Suspect]
     Indication: PROTEINURIA
     Dosage: 50 MG
     Route: 048
     Dates: start: 20130429, end: 201305
  2. DIURETIC [Concomitant]
  3. BLOOD PRESSURE MEDICATION [Concomitant]
     Indication: HYPERTENSION
  4. CHOLESTEROL MEDICATION [Concomitant]
     Indication: BLOOD CHOLESTEROL INCREASED

REACTIONS (2)
  - Rash generalised [Recovered/Resolved]
  - Dehydration [Recovered/Resolved]
